FAERS Safety Report 12360929 (Version 1)
Quarter: 2016Q2

REPORT INFORMATION
  Report Type: Spontaneous
  Country: IT (occurrence: IT)
  Receive Date: 20160512
  Receipt Date: 20160512
  Transmission Date: 20160815
  Serious: Yes (Hospitalization, Other)
  Sender: FDA-Public Use
  Company Number: IT-PFIZER INC-2016250553

PATIENT
  Age: 50 Year
  Sex: Female

DRUGS (4)
  1. METHIMAZOLE. [Concomitant]
     Active Substance: METHIMAZOLE
     Indication: BASEDOW^S DISEASE
     Dosage: 5 MG, DAILY
  2. METHYLPREDNISOLONE SODIUM SUCCINATE. [Suspect]
     Active Substance: METHYLPREDNISOLONE SODIUM SUCCINATE
     Indication: ENDOCRINE OPHTHALMOPATHY
     Dosage: AT A DOSAGE OF 500 MG FOR THE FIRST SIX INFUSIONS
     Route: 042
  3. METHYLPREDNISOLONE SODIUM SUCCINATE. [Suspect]
     Active Substance: METHYLPREDNISOLONE SODIUM SUCCINATE
     Dosage: 250 MG FOR THE LAST 6 INFUSIONS
     Route: 042
  4. PREDNISONE. [Concomitant]
     Active Substance: PREDNISONE
     Indication: BASEDOW^S DISEASE
     Dosage: 10 MG, DAILY
     Route: 048

REACTIONS (1)
  - Hepatocellular injury [Recovered/Resolved]
